FAERS Safety Report 18914018 (Version 1)
Quarter: 2021Q1

REPORT INFORMATION
  Report Type: Spontaneous
  Country: US (occurrence: US)
  Receive Date: 20210218
  Receipt Date: 20210218
  Transmission Date: 20210420
  Serious: No
  Sender: FDA-Public Use
  Company Number: US-NOVOPROD-732600

PATIENT
  Sex: Female

DRUGS (1)
  1. VICTOZA [Suspect]
     Active Substance: LIRAGLUTIDE
     Indication: DIABETES MELLITUS
     Dosage: UNK
     Route: 058

REACTIONS (5)
  - Arterial occlusive disease [Unknown]
  - Weight decreased [Unknown]
  - Mental impairment [Unknown]
  - Frustration tolerance decreased [Unknown]
  - Presyncope [Unknown]

NARRATIVE: CASE EVENT DATE: 20200601
